FAERS Safety Report 19050578 (Version 1)
Quarter: 2021Q1

REPORT INFORMATION
  Report Type: Spontaneous
  Country: US (occurrence: US)
  Receive Date: 20210323
  Receipt Date: 20210323
  Transmission Date: 20210420
  Serious: Yes (Death)
  Sender: FDA-Public Use
  Company Number: None

PATIENT
  Age: 54 Year
  Sex: Male
  Weight: 71.1 kg

DRUGS (2)
  1. HYDROXYZINE HCL 50 MG TABLET [Suspect]
     Active Substance: HYDROXYZINE HYDROCHLORIDE
     Indication: STRESS
     Dosage: ?          QUANTITY:1 TABLET(S);?
     Route: 048
     Dates: start: 20200804, end: 20201211
  2. HYDROXYZINE HCL 50 MG TABLET [Suspect]
     Active Substance: HYDROXYZINE HYDROCHLORIDE
     Indication: SLEEP DISORDER
     Dosage: ?          QUANTITY:1 TABLET(S);?
     Route: 048
     Dates: start: 20200804, end: 20201211

REACTIONS (4)
  - Suicidal ideation [None]
  - Delusion [None]
  - Paranoia [None]
  - Drowning [None]

NARRATIVE: CASE EVENT DATE: 20201211
